FAERS Safety Report 16519357 (Version 1)
Quarter: 2019Q3

REPORT INFORMATION
  Report Type: Spontaneous
  Country: PT (occurrence: PT)
  Receive Date: 20190702
  Receipt Date: 20190702
  Transmission Date: 20191004
  Serious: Yes (Other)
  Sender: FDA-Public Use
  Company Number: PT-MYLANLABS-2019M1061726

PATIENT
  Age: 73 Year
  Sex: Female

DRUGS (2)
  1. FENTANYL. [Suspect]
     Active Substance: FENTANYL
     Indication: SPINAL ANAESTHESIA
     Dosage: 2 SEPARATE DOSES
     Route: 008
  2. BUPIVACAINE. [Suspect]
     Active Substance: BUPIVACAINE
     Indication: SPINAL ANAESTHESIA
     Dosage: 5MG OF 0.5% IN 2 SEPARATE DOSES
     Route: 008

REACTIONS (2)
  - Neurotoxicity [Recovering/Resolving]
  - Cauda equina syndrome [Recovering/Resolving]
